FAERS Safety Report 10186800 (Version 3)
Quarter: 2014Q4

REPORT INFORMATION
  Report Type: Report from Study
  Country: US (occurrence: US)
  Receive Date: 20140521
  Receipt Date: 20141125
  Transmission Date: 20150528
  Serious: Yes (Hospitalization)
  Sender: FDA-Public Use
  Company Number: US-BRISTOL-MYERS SQUIBB COMPANY-20743449

PATIENT
  Age: 66 Year
  Sex: Male
  Weight: 83.6 kg

DRUGS (1)
  1. IPILIMUMAB [Suspect]
     Active Substance: IPILIMUMAB
     Indication: MALIGNANT MELANOMA
     Dosage: LAST DOSE ON:09APR14?877MG
     Route: 042
     Dates: start: 20140226

REACTIONS (3)
  - Muscular weakness [Recovering/Resolving]
  - Dehydration [Recovering/Resolving]
  - Syncope [Recovering/Resolving]

NARRATIVE: CASE EVENT DATE: 20140424
